FAERS Safety Report 20078652 (Version 1)
Quarter: 2021Q4

REPORT INFORMATION
  Report Type: Spontaneous
  Country: FR (occurrence: FR)
  Receive Date: 20211117
  Receipt Date: 20211117
  Transmission Date: 20220304
  Serious: Yes (Other)
  Sender: FDA-Public Use
  Company Number: FR-ABBVIE-21K-056-4159108-00

PATIENT
  Sex: Female

DRUGS (1)
  1. DEPAKOTE [Suspect]
     Active Substance: DIVALPROEX SODIUM
     Indication: Depression
     Route: 065

REACTIONS (10)
  - Drug dependence [Unknown]
  - Loss of consciousness [Unknown]
  - Feeling abnormal [Unknown]
  - Dizziness [Unknown]
  - Abdominal pain upper [Unknown]
  - Somnolence [Unknown]
  - Wrong technique in product usage process [Unknown]
  - Intentional product misuse [Unknown]
  - Product availability issue [Unknown]
  - Product use in unapproved indication [Unknown]
